FAERS Safety Report 19840380 (Version 1)
Quarter: 2021Q3

REPORT INFORMATION
  Report Type: Spontaneous
  Country: US (occurrence: US)
  Receive Date: 20210916
  Receipt Date: 20210916
  Transmission Date: 20211014
  Serious: Yes (Hospitalization)
  Sender: FDA-Public Use
  Company Number: US-MYLANLABS-2021M1062003

PATIENT
  Age: 70 Year
  Sex: Male

DRUGS (7)
  1. RIFAMPICIN [Suspect]
     Active Substance: RIFAMPIN
     Indication: CYSTITIS
     Dosage: 3 WEEK COURSE
     Route: 065
     Dates: start: 201904
  2. RIFAMPICIN [Suspect]
     Active Substance: RIFAMPIN
     Indication: DISSEMINATED BACILLUS CALMETTE-GUERIN INFECTION
     Dosage: UNK
     Route: 065
  3. ETHAMBUTOL [Suspect]
     Active Substance: ETHAMBUTOL HYDROCHLORIDE
     Indication: DISSEMINATED BACILLUS CALMETTE-GUERIN INFECTION
     Dosage: UNK
     Route: 065
  4. ISONIAZID. [Suspect]
     Active Substance: ISONIAZID
     Indication: DISSEMINATED BACILLUS CALMETTE-GUERIN INFECTION
     Dosage: 3 WEEK COURSE
     Route: 065
     Dates: start: 201904
  5. RIFAMPICIN [Suspect]
     Active Substance: RIFAMPIN
     Indication: PARAPHARYNGEAL SPACE INFECTION
  6. ISONIAZID. [Suspect]
     Active Substance: ISONIAZID
     Indication: PARAPHARYNGEAL SPACE INFECTION
  7. ISONIAZID. [Suspect]
     Active Substance: ISONIAZID
     Indication: CYSTITIS
     Dosage: UNK
     Route: 065

REACTIONS (3)
  - Neck mass [Recovering/Resolving]
  - Paradoxical drug reaction [Recovering/Resolving]
  - Condition aggravated [Recovering/Resolving]
